FAERS Safety Report 21972240 (Version 4)
Quarter: 2023Q1

REPORT INFORMATION
  Report Type: Spontaneous
  Country: JP (occurrence: JP)
  Receive Date: 20230209
  Receipt Date: 20230314
  Transmission Date: 20230418
  Serious: Yes (Death, Hospitalization, Other)
  Sender: FDA-Public Use
  Company Number: JP-MSD-M2023-04351

PATIENT
  Age: 75 Year
  Sex: Male

DRUGS (1)
  1. KEYTRUDA [Suspect]
     Active Substance: PEMBROLIZUMAB
     Indication: Transitional cell carcinoma
     Dosage: 200 MILLIGRAM, Q3W
     Route: 041

REACTIONS (7)
  - Diarrhoea [Fatal]
  - Hypoproteinaemia [Fatal]
  - Oedema [Fatal]
  - Respiratory failure [Fatal]
  - Cardiac failure [Fatal]
  - Organising pneumonia [Recovered/Resolved]
  - Hypopituitarism [Unknown]
